FAERS Safety Report 15134290 (Version 2)
Quarter: 2022Q1

REPORT INFORMATION
  Report Type: Spontaneous
  Country: BR (occurrence: BR)
  Receive Date: 20180712
  Receipt Date: 20220129
  Transmission Date: 20220423
  Serious: Yes (Other)
  Sender: FDA-Public Use
  Company Number: BR-TEVA-2018-BR-922879

PATIENT
  Age: 78 Year
  Sex: Male
  Weight: 88 kg

DRUGS (5)
  1. OXALIPLATIN [Suspect]
     Active Substance: OXALIPLATIN
     Indication: Colon cancer
     Dosage: 127,54 MILIGRAMS IN EACH 14 DAYS
     Route: 065
  2. TENADREN [Concomitant]
     Active Substance: HYDROCHLOROTHIAZIDE\PROPRANOLOL HYDROCHLORIDE
  3. VESICARE [Concomitant]
     Active Substance: SOLIFENACIN SUCCINATE
  4. Cortisonal 20 mg [Concomitant]
     Dosage: ON 13-MAR-2018, BEFORE THE PATIENT STARTED THE THIRD OXALIPLATIN BAG.
  5. AVASTIN [Concomitant]
     Active Substance: BEVACIZUMAB

REACTIONS (6)
  - Pruritus [Unknown]
  - Hyperaemia [Unknown]
  - Dermatitis allergic [Unknown]
  - Back pain [Unknown]
  - Tremor [Unknown]
  - Pain [Unknown]
